FAERS Safety Report 16915487 (Version 1)
Quarter: 2019Q4

REPORT INFORMATION
  Report Type: Spontaneous
  Country: GB (occurrence: GB)
  Receive Date: 20191014
  Receipt Date: 20191014
  Transmission Date: 20200122
  Serious: Yes (Other)
  Sender: FDA-Public Use
  Company Number: GB-MYLANLABS-2019M1096347

PATIENT
  Age: 27 Year
  Sex: Male
  Weight: 67.04 kg

DRUGS (4)
  1. CITALOPRAM [Suspect]
     Active Substance: CITALOPRAM HYDROBROMIDE
     Indication: DEPRESSION SUICIDAL
     Dosage: 10 MILLIGRAM
     Route: 048
     Dates: start: 20160906
  2. FEXOFENADINE HYDROCHLORIDE. [Concomitant]
     Active Substance: FEXOFENADINE HYDROCHLORIDE
     Dosage: UNK
  3. RANITIDINE HYDROCHLORIDE. [Concomitant]
     Active Substance: RANITIDINE HYDROCHLORIDE
     Dosage: UNK
  4. VITAMIN D                          /07503901/ [Concomitant]
     Active Substance: VITAMIN D NOS

REACTIONS (3)
  - Libido decreased [Not Recovered/Not Resolved]
  - Anhedonia [Unknown]
  - Dissociation [Not Recovered/Not Resolved]

NARRATIVE: CASE EVENT DATE: 20160910
